FAERS Safety Report 14278360 (Version 10)
Quarter: 2018Q2

REPORT INFORMATION
  Report Type: Spontaneous
  Country: IT (occurrence: IT)
  Receive Date: 20171212
  Receipt Date: 20180601
  Transmission Date: 20180711
  Serious: Yes (Life-Threatening, Hospitalization, Congenital Anomaly, Other)
  Sender: FDA-Public Use
  Company Number: IT-MYLANLABS-2008S1005305

PATIENT
  Age: 33 Week
  Sex: Female
  Weight: 1.97 kg

DRUGS (9)
  1. DICLOFENAC [Suspect]
     Active Substance: DICLOFENAC
     Indication: PRODUCT USED FOR UNKNOWN INDICATION
     Dosage: 75 MG, QD, FROM THE 2ND TO THE 3RD MONTH DURING MOTHER^S PREGNANCY 2ND TO 3RD MONTH: 8 WEEKS
     Route: 064
  2. NIMESULIDE [Suspect]
     Active Substance: NIMESULIDE
     Dosage: 100 MG, UNK
     Route: 064
  3. DICLOFENAC [Suspect]
     Active Substance: DICLOFENAC
     Dosage: 75 MG, QD
     Route: 064
  4. PARACETAMOL [Suspect]
     Active Substance: ACETAMINOPHEN
     Indication: PRODUCT USED FOR UNKNOWN INDICATION
     Dosage: 1 DF, QD, 8-9 GRAMS/DAY FROM THE 2ND TO THE 3RD MONTH; 1-2 GRAMS/DAY FROM THE 4TH MONTH TO DELIVERY
     Route: 064
  5. PARACETAMOL [Suspect]
     Active Substance: ACETAMINOPHEN
     Dosage: 1 DF, QD
     Route: 064
  6. DICLOFENAC [Suspect]
     Active Substance: DICLOFENAC
     Dosage: MATERNAL DOSE: 75 MG, QD
     Route: 064
  7. NIMESULIDE [Suspect]
     Active Substance: NIMESULIDE
     Indication: PRODUCT USED FOR UNKNOWN INDICATION
     Dosage: 1 DF, QD,100-200MG/DAY 3 MONTHS BEFORE TO 1 MONTH AFTER CONCEPTION; 100MG/DAY 4TH MONTH TO DELIVERY
     Route: 064
  8. NIMESULIDE [Suspect]
     Active Substance: NIMESULIDE
     Dosage: 100 MG, UNK
     Route: 064
  9. NIMESULIDE [Suspect]
     Active Substance: NIMESULIDE
     Dosage: 1 DF, QD
     Route: 064

REACTIONS (13)
  - Ductus arteriosus stenosis foetal [Recovered/Resolved]
  - Bradycardia neonatal [Recovered/Resolved]
  - Blood creatinine increased [Recovered/Resolved]
  - Neonatal respiratory distress syndrome [Recovered/Resolved]
  - Foetal exposure during pregnancy [Recovered/Resolved]
  - Cyanosis neonatal [Recovered/Resolved]
  - Neonatal respiratory acidosis [Recovered/Resolved]
  - Ductus arteriosus premature closure [Unknown]
  - Emphysema [Unknown]
  - Neonatal respiratory distress [Recovered/Resolved]
  - Polyuria [Unknown]
  - Premature baby [Unknown]
  - Renal failure neonatal [Recovered/Resolved]

NARRATIVE: CASE EVENT DATE: 200402
